FAERS Safety Report 21227919 (Version 2)
Quarter: 2022Q3

REPORT INFORMATION
  Report Type: Report from Study
  Country: CN (occurrence: None)
  Receive Date: 20220818
  Receipt Date: 20220919
  Transmission Date: 20221026
  Serious: Yes (Hospitalization)
  Sender: FDA-Public Use
  Company Number: CN-ROCHE-3157684

PATIENT
  Age: 58 Year
  Sex: Male
  Weight: 83 kg

DRUGS (2)
  1. OBINUTUZUMAB [Suspect]
     Active Substance: OBINUTUZUMAB
     Indication: Follicular lymphoma
     Dosage: 15/JUL/2022 LAST DOSE PRIOR TO SAE
     Route: 042
     Dates: start: 20201006
  2. ZANUBRUTINIB [Suspect]
     Active Substance: ZANUBRUTINIB
     Indication: Follicular lymphoma
     Dosage: 08/AUG/2022 LAST DOSE PRIOR TO SAE
     Route: 048
     Dates: start: 20201006

REACTIONS (2)
  - Muscle atrophy [Unknown]
  - Nerve degeneration [Unknown]

NARRATIVE: CASE EVENT DATE: 20220804
